FAERS Safety Report 23346533 (Version 3)
Quarter: 2024Q2

REPORT INFORMATION
  Report Type: Spontaneous
  Country: US (occurrence: US)
  Receive Date: 20231228
  Receipt Date: 20240415
  Transmission Date: 20240716
  Serious: Yes (Hospitalization, Other)
  Sender: FDA-Public Use
  Company Number: US-SUN PHARMACEUTICAL INDUSTRIES LTD-2023R1-425238

PATIENT
  Sex: Female

DRUGS (2)
  1. ODOMZO [Suspect]
     Active Substance: SONIDEGIB
     Indication: Basal cell carcinoma
     Dosage: UNK (1 CAPSULE BY MOUTH, ONCE DAILY)
     Route: 048
     Dates: start: 20240229
  2. ODOMZO [Suspect]
     Active Substance: SONIDEGIB
     Dosage: UNK
     Route: 048
     Dates: end: 20240229

REACTIONS (4)
  - Fall [Unknown]
  - Fracture [Unknown]
  - Biliary dilatation [Unknown]
  - Therapy cessation [Unknown]
